FAERS Safety Report 7042958-0 (Version None)
Quarter: 2010Q3

REPORT INFORMATION
  Report Type: 
  Country: None (occurrence: None)
  Receive Date: 20100929
  Receipt Date: 20100603
  Transmission Date: 20110219
  Serious: No
  Sender: FDA-Public Use
  Company Number: US-WYE-H15502510

PATIENT
  Sex: Female

DRUGS (1)
  1. PRISTIQ [Suspect]
     Dosage: DOSE INCREASED TO 100 MG, ORAL); 50 MG, ORAL
     Route: 048

REACTIONS (11)
  - AGITATION [None]
  - ANXIETY [None]
  - CONFUSIONAL STATE [None]
  - CRYING [None]
  - DISTURBANCE IN ATTENTION [None]
  - INAPPROPRIATE AFFECT [None]
  - MENTAL DISORDER [None]
  - MUSCLE SPASMS [None]
  - MUSCULOSKELETAL STIFFNESS [None]
  - RESTLESS LEGS SYNDROME [None]
  - TREMOR [None]
